FAERS Safety Report 14243114 (Version 2)
Quarter: 2017Q4

REPORT INFORMATION
  Report Type: Report from Study
  Country: DE (occurrence: DE)
  Receive Date: 20171201
  Receipt Date: 20171227
  Transmission Date: 20180321
  Serious: Yes (Death, Hospitalization, Other)
  Sender: FDA-Public Use
  Company Number: DE-BAYER-2016-223990

PATIENT
  Age: 61 Year
  Sex: Male
  Weight: 67 kg

DRUGS (6)
  1. ADEMPAS [Suspect]
     Active Substance: RIOCIGUAT
     Indication: PULMONARY ARTERIAL HYPERTENSION
     Dosage: DAILY DOSE 7.5 MG
     Dates: start: 20170411
  2. PHENPROCOUMON [Concomitant]
     Active Substance: PHENPROCOUMON
     Dosage: UNK
     Dates: start: 201308
  3. ADEMPAS [Suspect]
     Active Substance: RIOCIGUAT
     Indication: PULMONARY ARTERIAL HYPERTENSION
     Dosage: DAILY DOSE 7.5 MG
     Dates: start: 20151214
  4. ADEMPAS [Suspect]
     Active Substance: RIOCIGUAT
     Indication: PULMONARY ARTERIAL HYPERTENSION
     Dosage: DAILY DOSE 6 MG
     Dates: start: 20151207
  5. ADEMPAS [Suspect]
     Active Substance: RIOCIGUAT
     Indication: PULMONARY ARTERIAL HYPERTENSION
     Dosage: DAILY DOSE 6 MG
     Dates: start: 20170628
  6. OXYGEN. [Concomitant]
     Active Substance: OXYGEN
     Dosage: 15 LITER/MIN

REACTIONS (8)
  - Atrial fibrillation [Recovered/Resolved]
  - Atrial flutter [Recovered/Resolved]
  - Multiple organ dysfunction syndrome [Fatal]
  - Lung infection [Recovered/Resolved]
  - Hypotension [Recovered/Resolved]
  - Acute respiratory failure [Recovered/Resolved]
  - Infective exacerbation of chronic obstructive airways disease [Fatal]
  - Cardiac failure [Recovered/Resolved]

NARRATIVE: CASE EVENT DATE: 20161013
